FAERS Safety Report 10709633 (Version 1)
Quarter: 2015Q1

REPORT INFORMATION
  Report Type: Spontaneous
  Country: US (occurrence: None)
  Receive Date: 20150113
  Receipt Date: 20150113
  Transmission Date: 20150721
  Serious: Yes (Hospitalization)
  Sender: FDA-Public Use
  Company Number: None

PATIENT
  Age: 63 Year
  Sex: Male
  Weight: 85.4 kg

DRUGS (14)
  1. SIMEPREVIR [Suspect]
     Active Substance: SIMEPREVIR
     Indication: HEPATITIS C
     Dosage: 150 1X DAILY ORAL
     Route: 048
     Dates: start: 20140826, end: 20141120
  2. MORPHINE [Concomitant]
     Active Substance: MORPHINE
  3. CYCLOSPORINE. [Concomitant]
     Active Substance: CYCLOSPORINE
  4. ABACAVIR [Concomitant]
     Active Substance: ABACAVIR
  5. LAMIVUDINE. [Concomitant]
     Active Substance: LAMIVUDINE
  6. REMERON [Concomitant]
     Active Substance: MIRTAZAPINE
  7. ISENTRESS [Concomitant]
     Active Substance: RALTEGRAVIR POTASSIUM
  8. EUCERIN [Concomitant]
     Active Substance: ENSULIZOLE\EUCERIN\OCTINOXATE\OCTISALATE\TITANIUM DIOXIDE\ZINC OXIDE
  9. TAMSULOSIN [Concomitant]
     Active Substance: TAMSULOSIN
  10. SOFOSBUVIR [Suspect]
     Active Substance: SOFOSBUVIR
     Indication: HEPATITIS C
     Dosage: 400 1X DAILY ORAL
     Route: 048
     Dates: start: 20140826, end: 20141120
  11. CELLCEPT [Concomitant]
     Active Substance: MYCOPHENOLATE MOFETIL\MYCOPHENOLATE MOFETIL HYDROCHLORIDE
  12. DICLOFENAC [Concomitant]
     Active Substance: DICLOFENAC
  13. MULTIVITAMIN [Concomitant]
     Active Substance: VITAMINS
  14. THIAMINE [Concomitant]
     Active Substance: THIAMINE

REACTIONS (4)
  - Urinary tract infection [None]
  - Gout [None]
  - Acute kidney injury [None]
  - Dehydration [None]

NARRATIVE: CASE EVENT DATE: 20141007
